FAERS Safety Report 11440942 (Version 1)
Quarter: 2015Q3

REPORT INFORMATION
  Report Type: Spontaneous
  Country: US (occurrence: US)
  Receive Date: 20150821
  Receipt Date: 20150821
  Transmission Date: 20151125
  Serious: No
  Sender: FDA-Public Use
  Company Number: US-ELI_LILLY_AND_COMPANY-US200711002055

PATIENT
  Age: 46 Year
  Sex: Male

DRUGS (6)
  1. POTASSIUM [Concomitant]
     Active Substance: POTASSIUM
  2. AMLODIPINE [Concomitant]
     Active Substance: AMLODIPINE BESYLATE
  3. TRICOR [Concomitant]
     Active Substance: FENOFIBRATE
  4. CYMBALTA [Suspect]
     Active Substance: DULOXETINE HYDROCHLORIDE
     Dosage: 60 MG, UNK
     Dates: start: 20071109
  5. CYMBALTA [Suspect]
     Active Substance: DULOXETINE HYDROCHLORIDE
     Indication: DEPRESSION
     Dosage: 30 MG, DAILY (1/D)
     Dates: start: 20071026, end: 20071108
  6. LORAZEPAM. [Concomitant]
     Active Substance: LORAZEPAM

REACTIONS (2)
  - Dry mouth [Recovering/Resolving]
  - Chapped lips [Not Recovered/Not Resolved]

NARRATIVE: CASE EVENT DATE: 200710
